FAERS Safety Report 19224510 (Version 1)
Quarter: 2021Q2

REPORT INFORMATION
  Report Type: Spontaneous
  Country: US (occurrence: US)
  Receive Date: 20210505
  Receipt Date: 20210505
  Transmission Date: 20210717
  Serious: No
  Sender: FDA-Public Use
  Company Number: US-ROCHE-2689099

PATIENT
  Age: 76 Year
  Sex: Male
  Weight: 86.9 kg

DRUGS (9)
  1. GUAIFENESIN. [Concomitant]
     Active Substance: GUAIFENESIN
  2. ESBRIET [Suspect]
     Active Substance: PIRFENIDONE
     Indication: PULMONARY FIBROSIS
     Dosage: ONGOING: NO
     Route: 048
     Dates: start: 20200910, end: 20200917
  3. ESBRIET [Suspect]
     Active Substance: PIRFENIDONE
     Dosage: 2 TABLETS PER DOSE ;ONGOING: NO
     Route: 048
     Dates: start: 20200917, end: 20200924
  4. COREG [Concomitant]
     Active Substance: CARVEDILOL
     Indication: HYPERTENSION
     Dosage: ONGOING: YES
     Route: 048
     Dates: start: 1990
  5. VITAMIN E [Concomitant]
     Active Substance: .ALPHA.-TOCOPHEROL
  6. ESBRIET [Suspect]
     Active Substance: PIRFENIDONE
     Dosage: 3 TABLETS PER DOSE ;ONGOING: NO
     Route: 048
     Dates: start: 20200924, end: 20200930
  7. VITAMIN C [Concomitant]
     Active Substance: ASCORBIC ACID
     Dosage: ONGOING: YES
     Route: 048
     Dates: start: 2018
  8. VITAMINE D [Concomitant]
     Active Substance: CHOLECALCIFEROL
  9. LISINOPRIL. [Concomitant]
     Active Substance: LISINOPRIL
     Dosage: ONGOING:YES
     Route: 048
     Dates: start: 1995

REACTIONS (1)
  - Disturbance in attention [Recovered/Resolved]

NARRATIVE: CASE EVENT DATE: 20200924
